FAERS Safety Report 7297821-7 (Version None)
Quarter: 2011Q1

REPORT INFORMATION
  Report Type: 
  Country: None (occurrence: None)
  Receive Date: 20110217
  Receipt Date: 20110208
  Transmission Date: 20110831
  Serious: Yes (Hospitalization)
  Sender: FDA-Public Use
  Company Number: CA-JNJFOC-20110203237

PATIENT
  Age: 43 Year
  Sex: Female

DRUGS (9)
  1. TRAZODONE [Concomitant]
  2. ACETAMINOPHEN [Suspect]
     Indication: PRODUCT USED FOR UNKNOWN INDICATION
  3. QUETIAPINE [Concomitant]
  4. FUROSEMIDE [Concomitant]
  5. GABAPENTIN [Concomitant]
  6. ACETAMINOPHEN [Suspect]
  7. CITALOPRAM [Concomitant]
  8. DOCUSATE [Concomitant]
  9. LAXATIVES (NOS) [Concomitant]

REACTIONS (4)
  - INTENTIONAL OVERDOSE [None]
  - MENTAL STATUS CHANGES [None]
  - METABOLIC ACIDOSIS [None]
  - PYROGLUTAMATE INCREASED [None]
